FAERS Safety Report 7721409-4 (Version None)
Quarter: 2011Q3

REPORT INFORMATION
  Report Type: 
  Country: None (occurrence: None)
  Receive Date: 20110831
  Receipt Date: 20110825
  Transmission Date: 20111222
  Serious: Yes (Death, Hospitalization)
  Sender: FDA-Public Use
  Company Number: CA-ROCHE-784067

PATIENT
  Sex: Male
  Weight: 95.3 kg

DRUGS (8)
  1. LOVENOX [Concomitant]
  2. AVASTIN [Suspect]
     Indication: GLIOBLASTOMA
     Dosage: FREQUENCY: 2 WEEKS
     Route: 042
     Dates: start: 20110317, end: 20110526
  3. HYDROMORPHONE HCL [Concomitant]
  4. FAMOTIDINE [Concomitant]
  5. DEXAMETHASONE [Concomitant]
  6. DILANTIN [Concomitant]
  7. LYRICA [Concomitant]
  8. TYLENOL W/ CODEINE NO. 3 [Concomitant]

REACTIONS (2)
  - DEATH [None]
  - CONVULSION [None]
